FAERS Safety Report 13322235 (Version 1)
Quarter: 2017Q1

REPORT INFORMATION
  Report Type: Spontaneous
  Country: US (occurrence: US)
  Receive Date: 20170310
  Receipt Date: 20170310
  Transmission Date: 20170428
  Serious: Yes (Hospitalization, Other)
  Sender: FDA-Public Use
  Company Number: US-TEVA-747678USA

PATIENT
  Sex: Female

DRUGS (2)
  1. ETODOLAC. [Suspect]
     Active Substance: ETODOLAC
     Route: 065
  2. LODINE [Suspect]
     Active Substance: ETODOLAC
     Route: 065

REACTIONS (2)
  - Diverticulitis [Unknown]
  - Malaise [Unknown]
